FAERS Safety Report 8239950-7 (Version None)
Quarter: 2012Q1

REPORT INFORMATION
  Report Type: 
  Country: None (occurrence: None)
  Receive Date: 20120328
  Receipt Date: 20120320
  Transmission Date: 20120608
  Serious: Yes (Other)
  Sender: FDA-Public Use
  Company Number: RS-B.I. PHARMACEUTICALS,INC./RIDGEFIELD-2012-EU-01578GD

PATIENT

DRUGS (15)
  1. EPHEDRINE [Concomitant]
     Indication: HYPOTENSIVE ANAESTHESIA PROCEDURE
     Dosage: 10 MG BOLUSES
  2. PETIDIN [Concomitant]
     Indication: ANAESTHETIC PREMEDICATION
     Dosage: 10 MG
  3. FENTANYL [Concomitant]
     Indication: INDUCTION OF ANAESTHESIA
     Dosage: 1-2 MCG/KG
  4. CLONIDINE [Suspect]
     Indication: POSTOPERATIVE ANALGESIA
     Dosage: 5 MCG/ML, 5 ML BOLUS FOLLOWED BY INFUSION OF 2 - 5 ML/H, ADAPTED TO PAIN INTENSITY
     Route: 008
  5. RANITIDINE [Concomitant]
  6. HEPARIN [Concomitant]
  7. BUPIVACAINE HCL [Suspect]
     Indication: ANALGESIC THERAPY
     Dosage: 4 CONSECUTIVE 5 ML BOLUSES OF 0.25%
  8. ATROPINE [Concomitant]
     Indication: ANAESTHETIC PREMEDICATION
     Dosage: 0.5 MG
  9. PANCURONIUM BROMIDE [Concomitant]
     Indication: HYPOTONIA
     Dosage: 1 MG BOLUSES
  10. THIOPENTON [Concomitant]
     Indication: INDUCTION OF ANAESTHESIA
     Dosage: 2-3 MG/KG
  11. CRISTALOID MAINTENANCE FLUIDS [Concomitant]
     Dosage: FORMULATION: FLUIDS
  12. BUPIVACAINE HCL [Suspect]
     Indication: POSTOPERATIVE ANALGESIA
     Dosage: 0.125%, 5 ML BOLUS FOLLOWED BY INFUSION OF 2 - 5 ML/H, ADAPTED TO PAIN INTENSITY
     Route: 008
  13. MIDAZOLAM [Concomitant]
     Indication: ANAESTHETIC PREMEDICATION
     Dosage: 5 MG
     Route: 030
  14. PANCURONIUM BROMIDE [Concomitant]
     Indication: ENDOTRACHEAL INTUBATION
     Dosage: 0.6 MG/KG
  15. SEVOFLURANE [Concomitant]
     Indication: MAINTENANCE OF ANAESTHESIA
     Dosage: AT 0.8 - 1 MINIMAL ALVEOLAR CONCENTRATION
     Route: 055

REACTIONS (1)
  - HYPERTENSION [None]
